FAERS Safety Report 4353525-1 (Version None)
Quarter: 2004Q2

REPORT INFORMATION
  Report Type: 
  Country: None (occurrence: None)
  Receive Date: 20040430
  Receipt Date: 20040419
  Transmission Date: 20050107
  Serious: Yes (Hospitalization)
  Sender: FDA-Public Use
  Company Number: 2004026626

PATIENT
  Age: 72 Year
  Sex: Male
  Weight: 53.0709 kg

DRUGS (4)
  1. DILANTIN [Suspect]
     Indication: CEREBROVASCULAR ACCIDENT
     Dosage: 325 MG DAILY, GASTROMY TUBE
  2. NIFEDIPINE [Concomitant]
  3. PREDNISONE [Concomitant]
  4. ACETAMINOPHEN [Concomitant]

REACTIONS (2)
  - DRUG INTERACTION [None]
  - MEDICAL DEVICE COMPLICATION [None]
